FAERS Safety Report 21635861 (Version 1)
Quarter: 2022Q4

REPORT INFORMATION
  Report Type: Spontaneous
  Country: US (occurrence: US)
  Receive Date: 20221123
  Receipt Date: 20221123
  Transmission Date: 20230113
  Serious: No
  Sender: FDA-Public Use
  Company Number: US-BAUSCHBL-2022BNL002145

PATIENT
  Sex: Female

DRUGS (2)
  1. LUMIFY [Suspect]
     Active Substance: BRIMONIDINE TARTRATE
     Indication: Ocular hyperaemia
     Route: 047
     Dates: start: 202203, end: 2022
  2. LUMIFY [Suspect]
     Active Substance: BRIMONIDINE TARTRATE
     Route: 047
     Dates: start: 2022

REACTIONS (2)
  - Instillation site infection [Unknown]
  - Suspected product quality issue [Unknown]

NARRATIVE: CASE EVENT DATE: 20220301
